FAERS Safety Report 20566016 (Version 3)
Quarter: 2022Q3

REPORT INFORMATION
  Report Type: Report from Study
  Country: CA (occurrence: CA)
  Receive Date: 20220308
  Receipt Date: 20220712
  Transmission Date: 20221027
  Serious: Yes (Hospitalization)
  Sender: FDA-Public Use
  Company Number: CA-JNJFOC-20220230410

PATIENT
  Age: 82 Year
  Sex: Female

DRUGS (2)
  1. REMICADE [Suspect]
     Active Substance: INFLIXIMAB
     Indication: Rheumatoid arthritis
     Route: 041
     Dates: start: 20080312
  2. REMICADE [Suspect]
     Active Substance: INFLIXIMAB
     Dosage: ADMINISTERED AT THE LAST TREATMENT
     Route: 041

REACTIONS (4)
  - COVID-19 [Not Recovered/Not Resolved]
  - Oedema [Unknown]
  - Erythema [Unknown]
  - Arthralgia [Unknown]

NARRATIVE: CASE EVENT DATE: 20220101
